FAERS Safety Report 6480828-7 (Version None)
Quarter: 2009Q4

REPORT INFORMATION
  Report Type: 
  Country: None (occurrence: None)
  Receive Date: 20091123
  Receipt Date: 20090928
  Transmission Date: 20100525
  Serious: No
  Sender: FDA-Public Use
  Company Number: 8052635

PATIENT
  Age: 34 Year
  Sex: Female
  Weight: 59.1 kg

DRUGS (2)
  1. CIMZIA [Suspect]
     Indication: CROHN'S DISEASE
     Dosage: 400 MG SC
     Route: 058
     Dates: start: 20090911
  2. VIVELLE /00045401/ [Concomitant]

REACTIONS (1)
  - INJECTION SITE REACTION [None]
